FAERS Safety Report 6100988-7 (Version None)
Quarter: 2009Q1

REPORT INFORMATION
  Report Type: 
  Country: None (occurrence: None)
  Receive Date: 20090304
  Receipt Date: 20090220
  Transmission Date: 20090719
  Serious: Yes (Hospitalization)
  Sender: FDA-Public Use
  Company Number: US-ROCHE-615782

PATIENT
  Age: 91 Year
  Sex: Female

DRUGS (1)
  1. BONIVA [Suspect]
     Indication: OSTEOPOROSIS
     Route: 065
     Dates: start: 20080221

REACTIONS (3)
  - BONE PAIN [None]
  - MOBILITY DECREASED [None]
  - SPINAL COLUMN STENOSIS [None]
